FAERS Safety Report 20852384 (Version 1)
Quarter: 2022Q2

REPORT INFORMATION
  Report Type: Report from Study
  Country: US (occurrence: US)
  Receive Date: 20220520
  Receipt Date: 20220520
  Transmission Date: 20220721
  Serious: No
  Sender: FDA-Public Use
  Company Number: US-NOVARTISTESTPH-NVSC2022US111253

PATIENT
  Sex: Male

DRUGS (1)
  1. KESIMPTA [Suspect]
     Active Substance: OFATUMUMAB
     Indication: Product used for unknown indication
     Dosage: UNK
     Route: 065

REACTIONS (7)
  - Amnesia [Recovering/Resolving]
  - Gait disturbance [Recovering/Resolving]
  - Fall [Recovering/Resolving]
  - Illness [Recovering/Resolving]
  - Hyperhidrosis [Recovering/Resolving]
  - Feeling cold [Recovering/Resolving]
  - Feeling hot [Recovering/Resolving]
